FAERS Safety Report 6501323-2 (Version None)
Quarter: 2009Q4

REPORT INFORMATION
  Report Type: 
  Country: None (occurrence: None)
  Receive Date: 20091216
  Receipt Date: 20091215
  Transmission Date: 20100525
  Serious: Yes (Other)
  Sender: FDA-Public Use
  Company Number: A0771065A

PATIENT
  Age: 57 Year
  Sex: Female

DRUGS (1)
  1. ALLI [Suspect]
     Indication: WEIGHT LOSS DIET

REACTIONS (6)
  - ABNORMAL LOSS OF WEIGHT [None]
  - DECREASED APPETITE [None]
  - METABOLIC DISORDER [None]
  - NON-HODGKIN'S LYMPHOMA [None]
  - RECTAL DISCHARGE [None]
  - STEATORRHOEA [None]
